FAERS Safety Report 24176049 (Version 1)
Quarter: 2024Q3

REPORT INFORMATION
  Report Type: Report from Study
  Country: US (occurrence: None)
  Receive Date: 20240806
  Receipt Date: 20240806
  Transmission Date: 20241017
  Serious: Yes (Disabling, Other)
  Sender: ASTRAZENECA
  Company Number: 2022A011526

PATIENT
  Age: 51 Year
  Sex: Female
  Weight: 95.3 kg

DRUGS (12)
  1. SYMBICORT [Suspect]
     Active Substance: BUDESONIDE\FORMOTEROL FUMARATE DIHYDRATE
     Indication: Chronic obstructive pulmonary disease
     Dosage: 160/4.5 MCG ONE RESPIRATORY INHALATION TWICE A DAY
     Route: 055
     Dates: start: 2003
  2. SYMBICORT [Suspect]
     Active Substance: BUDESONIDE\FORMOTEROL FUMARATE DIHYDRATE
     Indication: Asthma
     Dosage: 160/4.5 MCG ONE RESPIRATORY INHALATION TWICE A DAY
     Route: 055
     Dates: start: 2003
  3. METFORMIN [Concomitant]
     Active Substance: METFORMIN HYDROCHLORIDE
     Indication: Type 2 diabetes mellitus
     Dosage: 1000 MG ONE ORALLY TWICE A DAY
     Route: 048
  4. LISINOPRIL [Concomitant]
     Active Substance: LISINOPRIL
     Indication: Blood pressure measurement
     Dosage: 20 MG ONE ORALLY DAILY
     Route: 048
  5. ALBUTEROL SULFATE [Concomitant]
     Active Substance: ALBUTEROL SULFATE
     Dosage: FOUR TIMES A DAY AS NEEDED PATIENT USUALLY USES TWICE A DAY
     Route: 055
  6. SINGULAIR [Concomitant]
     Active Substance: MONTELUKAST SODIUM
     Indication: Asthma
     Dosage: 10 MG ONE DAILY
     Route: 048
  7. GABAPENTIN [Concomitant]
     Active Substance: GABAPENTIN
     Indication: Restless legs syndrome
     Dosage: 300 MG ONE ORALLY FOUR TIMES A DAY
     Route: 048
  8. SPIRIVA [Concomitant]
     Active Substance: TIOTROPIUM BROMIDE MONOHYDRATE
     Indication: Chronic obstructive pulmonary disease
     Dosage: 18 MCG INHALE ONE PUFF TWICE A DAY
  9. PROAIR HFA [Concomitant]
     Active Substance: ALBUTEROL SULFATE
     Dosage: ONE RESPIRATORY INHALATION AS NEEDED AS REQUIRED
     Route: 055
  10. CETIRIZINE HYDROCHLORIDE [Concomitant]
     Active Substance: CETIRIZINE HYDROCHLORIDE
     Dosage: 10 MG ONE ORALLY DAILY
     Route: 048
  11. ASPIRIN [Concomitant]
     Active Substance: ASPIRIN
     Dosage: 325 MG ONE ORALLY DAILY
     Route: 048
  12. PROLENZA [Concomitant]
     Dosage: DROPS IN THE EYE ONE OR TWO 07 DAY OF THE INJECTION

REACTIONS (18)
  - Blindness unilateral [Unknown]
  - Joint dislocation [Unknown]
  - Thrombosis [Not Recovered/Not Resolved]
  - Chronic obstructive pulmonary disease [Unknown]
  - Dyspnoea [Unknown]
  - Type 2 diabetes mellitus [Unknown]
  - Sinus disorder [Unknown]
  - Immunodeficiency [Unknown]
  - Tooth disorder [Unknown]
  - Bronchitis [Unknown]
  - Pneumonia [Unknown]
  - Syncope [Unknown]
  - Retinal haemorrhage [Unknown]
  - Restless legs syndrome [Unknown]
  - Expired product administered [Unknown]
  - Product dose omission issue [Unknown]
  - Intentional product use issue [Unknown]
  - Inability to afford medication [Unknown]

NARRATIVE: CASE EVENT DATE: 20070101
